FAERS Safety Report 19410320 (Version 1)
Quarter: 2021Q2

REPORT INFORMATION
  Report Type: Other
  Country: CA (occurrence: CA)
  Receive Date: 20210614
  Receipt Date: 20210614
  Transmission Date: 20210717
  Serious: Yes (Other)
  Sender: FDA-Public Use
  Company Number: CA-APOTEX-2021AP013755

PATIENT
  Age: 57 Year
  Sex: Male

DRUGS (9)
  1. NASONEX [Suspect]
     Active Substance: MOMETASONE FUROATE
     Indication: PRODUCT USED FOR UNKNOWN INDICATION
     Dosage: UNK
     Route: 065
  2. SALBUTAMOL [Suspect]
     Active Substance: ALBUTEROL
     Indication: ASTHMA
     Dosage: 2 DOSAGE FORM
     Route: 065
  3. FORMOTEROL FUMARATE;MOMETASONE FUROATE [Suspect]
     Active Substance: FORMOTEROL FUMARATE\MOMETASONE FUROATE
     Indication: PRODUCT USED FOR UNKNOWN INDICATION
     Dosage: 2 DOSAGE FORM, TID
     Route: 065
  4. FLOVENT [Suspect]
     Active Substance: FLUTICASONE PROPIONATE
     Indication: ASTHMA
     Dosage: 125 MICROGRAM
     Route: 065
  5. PREDNISONE. [Suspect]
     Active Substance: PREDNISONE
     Indication: PRODUCT USED FOR UNKNOWN INDICATION
     Dosage: UNK
     Route: 065
  6. CEFUROXIME. [Suspect]
     Active Substance: CEFUROXIME
     Indication: PRODUCT USED FOR UNKNOWN INDICATION
     Dosage: UNK
     Route: 065
  7. SINGULAIR [Suspect]
     Active Substance: MONTELUKAST SODIUM
     Indication: ASTHMA
     Dosage: 10 MILLIGRAM, QD
     Route: 065
  8. UMECLIDINIUM BROMIDE [Suspect]
     Active Substance: UMECLIDINIUM BROMIDE
     Indication: ASTHMA
     Dosage: 1 DOSAGE FORM, QD
     Route: 065
  9. SINGULAIR [Suspect]
     Active Substance: MONTELUKAST SODIUM
     Indication: PRODUCT USED FOR UNKNOWN INDICATION
     Dosage: UNK, QD
     Route: 065

REACTIONS (25)
  - Blood count abnormal [Unknown]
  - Sputum discoloured [Unknown]
  - Congenital diaphragmatic hernia [Unknown]
  - Productive cough [Unknown]
  - Haemoptysis [Unknown]
  - Loss of personal independence in daily activities [Unknown]
  - Sinusitis [Unknown]
  - Asthma [Unknown]
  - Nasal disorder [Unknown]
  - Nasal polyps [Unknown]
  - Wheezing [Unknown]
  - Pneumonia [Unknown]
  - Therapeutic product effect incomplete [Unknown]
  - Cough [Unknown]
  - Lung disorder [Unknown]
  - Condition aggravated [Unknown]
  - Eosinophil count increased [Unknown]
  - Sleep disorder due to a general medical condition [Unknown]
  - Atelectasis [Unknown]
  - Chest discomfort [Unknown]
  - Computerised tomogram thorax abnormal [Unknown]
  - Dyspnoea [Unknown]
  - Dyspnoea exertional [Unknown]
  - Ill-defined disorder [Unknown]
  - Lung opacity [Unknown]
